FAERS Safety Report 12550158 (Version 2)
Quarter: 2016Q3

REPORT INFORMATION
  Report Type: Spontaneous
  Country: JP (occurrence: JP)
  Receive Date: 20160712
  Receipt Date: 20160817
  Transmission Date: 20161109
  Serious: Yes (Other)
  Sender: FDA-Public Use
  Company Number: JP-ELI_LILLY_AND_COMPANY-JP201607002430

PATIENT
  Age: 79 Year
  Sex: Male
  Weight: 53 kg

DRUGS (7)
  1. URSO [Concomitant]
     Active Substance: URSODIOL
     Dosage: 100 MG, TID
     Dates: start: 20150917
  2. CYRAMZA [Suspect]
     Active Substance: RAMUCIRUMAB
     Indication: GASTRIC CANCER
     Dosage: UNK
     Route: 042
     Dates: start: 20150701, end: 20151028
  3. LOPEMIN                            /00384302/ [Concomitant]
     Active Substance: LOPERAMIDE HYDROCHLORIDE
     Indication: DIARRHOEA
     Dosage: 1 MG, TID
     Dates: start: 20150917
  4. ADSORBIN [Concomitant]
     Active Substance: ALUMINUM SILICATE
     Indication: DIARRHOEA
     Dosage: 3 G, TID
     Dates: start: 20150917
  5. CYRAMZA [Suspect]
     Active Substance: RAMUCIRUMAB
     Dosage: 400 MG, OTHER
     Route: 042
     Dates: start: 20151222, end: 20151222
  6. PACLITAXEL. [Suspect]
     Active Substance: PACLITAXEL
     Indication: GASTRIC CANCER
     Dosage: UNK, WEEKLY (1/W)
     Route: 042
     Dates: start: 20150601, end: 20150624
  7. PACLITAXEL. [Suspect]
     Active Substance: PACLITAXEL
     Dosage: UNK UNK, WEEKLY (1/W)
     Route: 042
     Dates: start: 20150701, end: 20151028

REACTIONS (3)
  - Platelet count decreased [Recovered/Resolved]
  - Lymphatic obstruction [Recovering/Resolving]
  - Blood alkaline phosphatase increased [Unknown]

NARRATIVE: CASE EVENT DATE: 20150805
